FAERS Safety Report 8803930 (Version 1)
Quarter: 2012Q4

REPORT INFORMATION
  Report Type: 
  Country: HU (occurrence: HU)
  Receive Date: 20120924
  Receipt Date: 20120924
  Transmission Date: 20130627
  Serious: Yes (Other)
  Sender: FDA-Public Use
  Company Number: PHHY2012HU067701

PATIENT
  Age: 53 Year
  Sex: Female

DRUGS (6)
  1. ONBREZ [Suspect]
     Indication: CHRONIC OBSTRUCTIVE PULMONARY DISEASE
     Dosage: 150 ug, UNK
     Dates: start: 20120628, end: 20120707
  2. METAMIZOLE SODIUM [Interacting]
  3. TOLPERISONE [Interacting]
  4. UNSPECIFIED INGREDIENT [Interacting]
  5. MUSCLE RELAXANTS [Concomitant]
  6. ANTIRHEUMATIC (INCL.ANTIPHLOGISTICS) [Concomitant]

REACTIONS (3)
  - Blister [Recovered/Resolved]
  - Pitted keratolysis [Recovered/Resolved]
  - Drug interaction [Unknown]
